FAERS Safety Report 8420833-4 (Version None)
Quarter: 2012Q2

REPORT INFORMATION
  Report Type: 
  Country: None (occurrence: None)
  Receive Date: 20120530
  Receipt Date: 20120503
  Transmission Date: 20120825
  Serious: Yes (Life-Threatening, Hospitalization, Other)
  Sender: FDA-Public Use
  Company Number: GB-DEXPHARM-20120381

PATIENT
  Age: 54 Year
  Sex: Female

DRUGS (1)
  1. OMEPRAZOLE [Suspect]
     Dosage: DOSE: 10 MG MILLGRAM(S) ORAL
     Route: 048
     Dates: start: 20120418, end: 20120423

REACTIONS (2)
  - JAUNDICE [None]
  - HEPATITIS [None]
